FAERS Safety Report 21587184 (Version 1)
Quarter: 2022Q4

REPORT INFORMATION
  Report Type: Spontaneous
  Country: US (occurrence: US)
  Receive Date: 20221114
  Receipt Date: 20221114
  Transmission Date: 20230112
  Serious: Yes (Other)
  Sender: FDA-Public Use
  Company Number: US-BEIGENE, LTD-BGN-2022-010767

PATIENT

DRUGS (23)
  1. BRUKINSA [Suspect]
     Active Substance: ZANUBRUTINIB
     Indication: Diffuse large B-cell lymphoma
  2. ELIQUIS [Suspect]
     Active Substance: APIXABAN
     Indication: Cerebrovascular accident prophylaxis
  3. ELIQUIS [Suspect]
     Active Substance: APIXABAN
     Indication: COVID-19 prophylaxis
  4. ERGOCALCIFEROL [Concomitant]
     Active Substance: ERGOCALCIFEROL
  5. VITAMIN E [Concomitant]
     Active Substance: .ALPHA.-TOCOPHEROL
  6. MORNIFLUMATE [Concomitant]
     Active Substance: MORNIFLUMATE
  7. JARDIANCE [Concomitant]
     Active Substance: EMPAGLIFLOZIN
  8. MYRBETRIQ [Concomitant]
     Active Substance: MIRABEGRON
  9. ACYCLOVIR [Concomitant]
     Active Substance: ACYCLOVIR
  10. VITAMIN C [Concomitant]
     Active Substance: ASCORBIC ACID
     Dosage: UNK
  11. FOLIC ACID [Concomitant]
     Active Substance: FOLIC ACID
  12. PRAVASTATIN [Concomitant]
     Active Substance: PRAVASTATIN
  13. FERROUS GLUCONATE [Concomitant]
     Active Substance: FERROUS GLUCONATE
  14. PROSCAR [Concomitant]
     Active Substance: FINASTERIDE
  15. OMEPRAZOLE [Concomitant]
     Active Substance: OMEPRAZOLE
  16. ZINC [Concomitant]
     Active Substance: ZINC
  17. EVUSHELD [Concomitant]
     Active Substance: CILGAVIMAB\TIXAGEVIMAB
  18. FUROSEMIDE [Concomitant]
     Active Substance: FUROSEMIDE
  19. TRAZODONE HCL [Concomitant]
     Active Substance: TRAZODONE HYDROCHLORIDE
  20. AMIODARONE HYDROCHLORIDE [Concomitant]
     Active Substance: AMIODARONE HYDROCHLORIDE
  21. METFORMIN [Concomitant]
     Active Substance: METFORMIN HYDROCHLORIDE
  22. LOSARTAN [Concomitant]
     Active Substance: LOSARTAN
  23. FISH OIL [Concomitant]
     Active Substance: FISH OIL

REACTIONS (3)
  - Contusion [Unknown]
  - Purpura [Unknown]
  - Off label use [Unknown]

NARRATIVE: CASE EVENT DATE: 20211101
